FAERS Safety Report 8010188-1 (Version None)
Quarter: 2011Q4

REPORT INFORMATION
  Report Type: 
  Country: None (occurrence: None)
  Receive Date: 20111221
  Receipt Date: 20111115
  Transmission Date: 20120403
  Serious: Yes (Other)
  Sender: FDA-Public Use
  Company Number: 2011SP023221

PATIENT

DRUGS (5)
  1. CHLORPHENIRAMINE MALEATE [Suspect]
     Indication: BENIGN PROSTATIC HYPERPLASIA
  2. AMITRIPTYLINE HCL [Suspect]
     Indication: PRODUCT USED FOR UNKNOWN INDICATION
  3. DIGOXIN [Suspect]
     Indication: PRODUCT USED FOR UNKNOWN INDICATION
  4. IRON SUPPLEMENTS (IRON PREPARATIONS) [Suspect]
     Indication: PRODUCT USED FOR UNKNOWN INDICATION
  5. DIAZEPAM [Suspect]
     Indication: PRODUCT USED FOR UNKNOWN INDICATION

REACTIONS (7)
  - DIABETES MELLITUS [None]
  - OFF LABEL USE [None]
  - PEPTIC ULCER [None]
  - PAIN [None]
  - DRUG PRESCRIBING ERROR [None]
  - BENIGN PROSTATIC HYPERPLASIA [None]
  - CHRONIC OBSTRUCTIVE PULMONARY DISEASE [None]
